FAERS Safety Report 5212801-0 (Version None)
Quarter: 2007Q1

REPORT INFORMATION
  Report Type: 
  Country: None (occurrence: None)
  Receive Date: 20070119
  Receipt Date: 20070110
  Transmission Date: 20070707
  Serious: Yes (Other)
  Sender: FDA-Public Use
  Company Number: PHFR2007GB00529

PATIENT
  Age: 56 Year
  Sex: Female

DRUGS (2)
  1. TEGRETOL [Suspect]
     Indication: EPILEPSY
     Dosage: TWO AND A HALF 200MG TABS MANE AND NOCTE
     Route: 048
  2. LEVETIRACETAM [Suspect]
     Indication: EPILEPSY
     Route: 065

REACTIONS (2)
  - ACCOMMODATION DISORDER [None]
  - DIPLOPIA [None]
